FAERS Safety Report 11052382 (Version 1)
Quarter: 2015Q2

REPORT INFORMATION
  Report Type: Spontaneous
  Country: US (occurrence: US)
  Receive Date: 20150421
  Receipt Date: 20150421
  Transmission Date: 20150821
  Serious: No
  Sender: FDA-Public Use
  Company Number: US-TEVA-553584USA

PATIENT
  Sex: Female

DRUGS (1)
  1. ADASUVE [Suspect]
     Active Substance: LOXAPINE
     Route: 055
     Dates: start: 20150401

REACTIONS (2)
  - Accidental exposure to product [Recovered/Resolved]
  - Feeling abnormal [Recovered/Resolved]
